FAERS Safety Report 19473479 (Version 2)
Quarter: 2021Q3

REPORT INFORMATION
  Report Type: Report from Study
  Country: US (occurrence: US)
  Receive Date: 20210629
  Receipt Date: 20210802
  Transmission Date: 20211014
  Serious: Yes (Hospitalization)
  Sender: FDA-Public Use
  Company Number: US-ROCHE-2854173

PATIENT
  Age: 63 Year
  Sex: Female
  Weight: 96.3 kg

DRUGS (4)
  1. IBRUTINIB [Suspect]
     Active Substance: IBRUTINIB
     Indication: CHRONIC LYMPHOCYTIC LEUKAEMIA
     Dosage: ON DAYS 1?28?TOTAL DOSE ADMINISTERED: 4200 MG?ON 29/MAY/2021, SHE RECEIVED THE MOST RECENT DOSE OF I
     Route: 048
     Dates: start: 20210520
  2. OBINUTUZUMAB. [Suspect]
     Active Substance: OBINUTUZUMAB
     Indication: CHRONIC LYMPHOCYTIC LEUKAEMIA
     Dosage: ON DAY 1, CYCLE 1
     Route: 042
     Dates: start: 20210128, end: 20210520
  3. OBINUTUZUMAB. [Suspect]
     Active Substance: OBINUTUZUMAB
     Dosage: ON DAY 2, CYCLE 1
     Route: 042
     Dates: start: 20210128, end: 20210520
  4. OBINUTUZUMAB. [Suspect]
     Active Substance: OBINUTUZUMAB
     Dosage: ON DAY 8, CYCLE 1, 1000 MG IV ON DAY 15, CYCLE 1, 1000 MG IV ON DAY 1, CYCLE 2?6?ON 20/MAY/2021, SHE
     Route: 042
     Dates: start: 20210128, end: 20210520

REACTIONS (1)
  - Cellulitis [Recovering/Resolving]

NARRATIVE: CASE EVENT DATE: 20210529
